FAERS Safety Report 5622304-7 (Version None)
Quarter: 2008Q1

REPORT INFORMATION
  Report Type: 
  Country: None (occurrence: None)
  Receive Date: 20080114
  Receipt Date: 20071016
  Transmission Date: 20080703
  Serious: Yes (Other)
  Sender: FDA-Public Use
  Company Number: A03200706029

PATIENT
  Age: 86 Year
  Sex: Male

DRUGS (4)
  1. PLAVIX [Suspect]
     Indication: STENT PLACEMENT
     Dosage: ORAL
     Route: 048
     Dates: start: 20070810
  2. METOPROLOL SUCCINATE [Concomitant]
  3. OMEPRAZOLE [Concomitant]
  4. EZETIMIBE/SIMVASTATIN [Concomitant]

REACTIONS (3)
  - BLOOD PRESSURE DECREASED [None]
  - BRADYCARDIA [None]
  - SYNCOPE [None]
